FAERS Safety Report 6785094-0 (Version None)
Quarter: 2010Q2

REPORT INFORMATION
  Report Type: 
  Country: None (occurrence: None)
  Receive Date: 20100622
  Receipt Date: 20100614
  Transmission Date: 20101027
  Serious: Yes (Hospitalization)
  Sender: FDA-Public Use
  Company Number: US-AMGEN-QUU418587

PATIENT
  Sex: Female

DRUGS (1)
  1. ENBREL [Suspect]
     Route: 064
     Dates: start: 20040101, end: 20070101

REACTIONS (3)
  - BRONCHITIS [None]
  - JAUNDICE NEONATAL [None]
  - RESPIRATORY TRACT INFECTION [None]
